FAERS Safety Report 23382163 (Version 3)
Quarter: 2024Q1

REPORT INFORMATION
  Report Type: Spontaneous
  Country: US (occurrence: US)
  Receive Date: 20240109
  Receipt Date: 20240221
  Transmission Date: 20240410
  Serious: No
  Sender: FDA-Public Use
  Company Number: US-PFIZER INC-202300450136

PATIENT
  Age: 12 Year
  Sex: Male

DRUGS (1)
  1. GENOTROPIN [Suspect]
     Active Substance: SOMATROPIN
     Dosage: 1.4 MG, DAILY
     Dates: start: 202312

REACTIONS (5)
  - Drug dose omission by device [Unknown]
  - Device use error [Unknown]
  - Device issue [Unknown]
  - Device leakage [Unknown]
  - Pyrexia [Unknown]
